FAERS Safety Report 10933533 (Version 1)
Quarter: 2015Q1

REPORT INFORMATION
  Report Type: Spontaneous
  Country: US (occurrence: US)
  Receive Date: 20150320
  Receipt Date: 20150320
  Transmission Date: 20150721
  Serious: No
  Sender: FDA-Public Use
  Company Number: US-GLAXOSMITHKLINE-US2015029498

PATIENT
  Age: 79 Year
  Sex: Male

DRUGS (6)
  1. FINASTERIDE. [Concomitant]
     Active Substance: FINASTERIDE
  2. VITAMIN A [Interacting]
     Active Substance: VITAMIN A
     Indication: PRODUCT USED FOR UNKNOWN INDICATION
     Dosage: UNK, 1D
  3. PROPAFENONE. [Concomitant]
     Active Substance: PROPAFENONE
  4. TAMSULOSIN [Concomitant]
     Active Substance: TAMSULOSIN
  5. FLUDROCORTISONE [Concomitant]
     Active Substance: FLUDROCORTISONE
  6. SORIATANE [Suspect]
     Active Substance: ACITRETIN
     Indication: TRANSIENT ACANTHOLYTIC DERMATOSIS
     Route: 048
     Dates: start: 20150303

REACTIONS (6)
  - Inflammation [Recovering/Resolving]
  - Labelled drug-drug interaction medication error [Not Recovered/Not Resolved]
  - Rash macular [Recovering/Resolving]
  - Condition aggravated [Recovering/Resolving]
  - Product use issue [Not Recovered/Not Resolved]
  - Pruritus [Not Recovered/Not Resolved]

NARRATIVE: CASE EVENT DATE: 20150303
